FAERS Safety Report 7217166-0 (Version None)
Quarter: 2010Q4

REPORT INFORMATION
  Report Type: 
  Country: None (occurrence: None)
  Receive Date: 20101230
  Receipt Date: 20101217
  Transmission Date: 20110411
  Serious: Yes (Other)
  Sender: FDA-Public Use
  Company Number: 024061

PATIENT
  Age: 28 Year
  Sex: Male

DRUGS (1)
  1. LACOSAMIDE [Suspect]
     Dosage: UNKNOWN DOSE

REACTIONS (1)
  - SUICIDAL IDEATION [None]
